FAERS Safety Report 23228590 (Version 2)
Quarter: 2024Q1

REPORT INFORMATION
  Report Type: Spontaneous
  Country: US (occurrence: US)
  Receive Date: 20231125
  Receipt Date: 20240201
  Transmission Date: 20240409
  Serious: Yes (Hospitalization, Other)
  Sender: FDA-Public Use
  Company Number: US-BAYER-2023A164392

PATIENT
  Age: 22 Month
  Sex: Male

DRUGS (1)
  1. KOVALTRY [Suspect]
     Active Substance: ANTIHEMOPHILIC FACTOR, HUMAN RECOMBINANT
     Indication: Factor VIII deficiency
     Dosage: 460 IU, PRN
     Dates: start: 202202

REACTIONS (2)
  - Muscle haemorrhage [None]
  - Haemorrhage [None]

NARRATIVE: CASE EVENT DATE: 20231106
